FAERS Safety Report 25811273 (Version 2)
Quarter: 2025Q4

REPORT INFORMATION
  Report Type: Spontaneous
  Country: US (occurrence: US)
  Receive Date: 20250917
  Receipt Date: 20251216
  Transmission Date: 20260118
  Serious: No
  Sender: BRAEBURN PHARMACEUTICALS
  Company Number: US-BRAEBURN PHARMACEUTICALS-US-BRA-25-000597

PATIENT
  Sex: Female
  Weight: 104.4 kg

DRUGS (2)
  1. BRIXADI [Suspect]
     Active Substance: BUPRENORPHINE
     Indication: Product used for unknown indication
     Dosage: 32 MILLIGRAM, QW
     Route: 065
     Dates: start: 20250610
  2. BRIXADI [Suspect]
     Active Substance: BUPRENORPHINE
     Dosage: 32 MILLIGRAM, QW
     Route: 065
     Dates: start: 20250624, end: 20250624

REACTIONS (4)
  - Injection site urticaria [Unknown]
  - Nausea [Recovered/Resolved]
  - Vomiting [Recovered/Resolved]
  - Maternal exposure during pregnancy [Unknown]

NARRATIVE: CASE EVENT DATE: 20250101
